FAERS Safety Report 6160533-7 (Version None)
Quarter: 2009Q2

REPORT INFORMATION
  Report Type: 
  Country: None (occurrence: None)
  Receive Date: 20090420
  Receipt Date: 20090409
  Transmission Date: 20091009
  Serious: Yes (Other)
  Sender: FDA-Public Use
  Company Number: US-MERCK-0903USA02294

PATIENT
  Sex: Male

DRUGS (2)
  1. SINGULAIR [Suspect]
     Route: 048
  2. FLOVENT [Concomitant]
     Route: 065

REACTIONS (2)
  - ABNORMAL BEHAVIOUR [None]
  - MENTAL DISORDER [None]
